FAERS Safety Report 22000582 (Version 2)
Quarter: 2023Q4

REPORT INFORMATION
  Report Type: Spontaneous
  Country: US (occurrence: US)
  Receive Date: 20230216
  Receipt Date: 20231026
  Transmission Date: 20240110
  Serious: Yes (Death, Life-Threatening, Hospitalization, Other)
  Sender: FDA-Public Use
  Company Number: US-SUN PHARMACEUTICAL INDUSTRIES LTD-2023R1-378667

PATIENT
  Age: 71 Year
  Sex: Female

DRUGS (1)
  1. ALLOPURINOL [Suspect]
     Active Substance: ALLOPURINOL
     Indication: Product used for unknown indication
     Dosage: UNK
     Route: 065

REACTIONS (12)
  - Drug reaction with eosinophilia and systemic symptoms [Unknown]
  - Drug reaction with eosinophilia and systemic symptoms [Unknown]
  - Hypertransaminasaemia [Unknown]
  - Acute kidney injury [Unknown]
  - Respiratory failure [Unknown]
  - Anaemia [Unknown]
  - Thrombocytopenia [Unknown]
  - Disseminated intravascular coagulation [Unknown]
  - Staphylococcal infection [Unknown]
  - Pneumocystis jirovecii pneumonia [Unknown]
  - Pericardial effusion [Unknown]
  - Acute respiratory failure [Fatal]
